FAERS Safety Report 4579523-0 (Version None)
Quarter: 2005Q1

REPORT INFORMATION
  Report Type: 
  Country: None (occurrence: None)
  Receive Date: 20050210
  Receipt Date: 20050128
  Transmission Date: 20050727
  Serious: Yes (Death)
  Sender: FDA-Public Use
  Company Number: 2005S1000342

PATIENT
  Age: 78 Year
  Sex: Male

DRUGS (1)
  1. CLOZAPINE [Suspect]
     Dosage: 100MG, BID, ORAL
     Route: 048
     Dates: end: 20041201

REACTIONS (2)
  - FAILURE TO THRIVE [None]
  - PNEUMONIA ASPIRATION [None]
